FAERS Safety Report 15963791 (Version 2)
Quarter: 2019Q1

REPORT INFORMATION
  Report Type: Spontaneous
  Country: FR (occurrence: FR)
  Receive Date: 20190214
  Receipt Date: 20190228
  Transmission Date: 20190417
  Serious: Yes (Hospitalization, Other)
  Sender: FDA-Public Use
  Company Number: FR-MYLANLABS-2019M1012724

PATIENT
  Age: 48 Year
  Sex: Female
  Weight: 73.8 kg

DRUGS (6)
  1. METHOTREXATE MYLAN [Suspect]
     Active Substance: METHOTREXATE SODIUM
     Indication: PRECURSOR T-LYMPHOBLASTIC LYMPHOMA/LEUKAEMIA
     Dosage: 15 MILLIGRAM, CYCLE
     Route: 037
     Dates: start: 20180529
  2. METHYLPREDNISOLONE MYLAN [Suspect]
     Active Substance: METHYLPREDNISOLONE
     Indication: PRECURSOR T-LYMPHOBLASTIC LYMPHOMA/LEUKAEMIA
     Dosage: 40 MILLIGRAM, CYCLE
     Route: 037
     Dates: start: 20180529
  3. ERWINASE                           /07841701/ [Suspect]
     Active Substance: ASPARAGINASE ERWINIA CHRYSANTHEMI
     Indication: PRECURSOR T-LYMPHOBLASTIC LYMPHOMA/LEUKAEMIA
     Dosage: 35000 INTERNATIONAL UNIT, CYCLE (20000UI/M? 1 FOIS PAR CYCLE)
     Route: 042
     Dates: start: 20180529
  4. ARACYTINE [Suspect]
     Active Substance: CYTARABINE
     Indication: PRECURSOR T-LYMPHOBLASTIC LYMPHOMA/LEUKAEMIA
     Dosage: 40 MILLIGRAM, CYCLE (40MG J2)
     Route: 037
     Dates: start: 20180529
  5. ARACYTINE [Suspect]
     Active Substance: CYTARABINE
     Dosage: 2000 MILLIGRAM/SQ. METER, BID (2000MG/M? TOUTES LES 12H J1 J2)
     Route: 042
     Dates: start: 20180529
  6. DEXAMETHASONE MYLAN [Suspect]
     Active Substance: DEXAMETHASONE
     Indication: PRECURSOR T-LYMPHOBLASTIC LYMPHOMA/LEUKAEMIA
     Dosage: 20 MILLIGRAM, CYCLE
     Route: 042
     Dates: start: 20180529

REACTIONS (1)
  - Febrile bone marrow aplasia [Recovered/Resolved]

NARRATIVE: CASE EVENT DATE: 20180609
